FAERS Safety Report 12420326 (Version 10)
Quarter: 2017Q4

REPORT INFORMATION
  Report Type: Spontaneous
  Country: US (occurrence: US)
  Receive Date: 20160531
  Receipt Date: 20171227
  Transmission Date: 20180320
  Serious: Yes (Hospitalization, Other)
  Sender: FDA-Public Use
  Company Number: US-PFIZER INC-2016272556

PATIENT
  Age: 71 Year
  Sex: Male
  Weight: 85.99 kg

DRUGS (22)
  1. FOLIC ACID. [Concomitant]
     Active Substance: FOLIC ACID
     Dosage: 1 MG, UNK
  2. ISOSORBIDE MONONITRATE. [Concomitant]
     Active Substance: ISOSORBIDE MONONITRATE
     Dosage: 30 MG, UNK
  3. RESTORIL [Concomitant]
     Active Substance: TEMAZEPAM
     Dosage: 30 MG, DAILY
     Route: 048
  4. LYRICA [Suspect]
     Active Substance: PREGABALIN
     Dosage: 200 MG, 3X/DAY
     Route: 048
  5. LYRICA [Suspect]
     Active Substance: PREGABALIN
     Indication: NEUROPATHY PERIPHERAL
     Dosage: 75MG CAPSULE TWICE A DAY, MORNING AND NIGHT
  6. LYRICA [Suspect]
     Active Substance: PREGABALIN
     Indication: DYSSTASIA
     Dosage: 150 MG, 2X/DAY
     Route: 048
     Dates: start: 20160715
  7. ATORVASTATIN [Concomitant]
     Active Substance: ATORVASTATIN
     Indication: BLOOD CHOLESTEROL
     Dosage: 20 MG, DAILY
  8. LYRICA [Suspect]
     Active Substance: PREGABALIN
     Indication: PAIN
     Dosage: 75 MG, UNK
     Dates: start: 201601
  9. LYRICA [Suspect]
     Active Substance: PREGABALIN
     Indication: PAIN IN EXTREMITY
     Dosage: 150 MG BID, AS NEEDED
     Route: 048
  10. LYRICA [Suspect]
     Active Substance: PREGABALIN
     Indication: NEURALGIA
     Dosage: 150 MG, 3X/DAY
     Route: 048
  11. GABAPENTIN. [Suspect]
     Active Substance: GABAPENTIN
     Indication: DIABETIC NEUROPATHY
     Dosage: 300 MG, 3X/DAY
     Dates: start: 2008
  12. CLOPIDOGREL [Concomitant]
     Active Substance: CLOPIDOGREL BISULFATE
     Dosage: 75 MG, UNK
  13. FUROSEMIDE. [Concomitant]
     Active Substance: FUROSEMIDE
     Dosage: 40 MG, UNK
  14. NITROSTAT [Concomitant]
     Active Substance: NITROGLYCERIN
     Dosage: 0.4 MG, UNK
     Route: 060
  15. NOVOLIN N [Concomitant]
     Active Substance: INSULIN HUMAN
     Dosage: 25 IU, DAILY
     Route: 058
     Dates: start: 20170815
  16. TAMSULOSIN [Concomitant]
     Active Substance: TAMSULOSIN
     Dosage: 0.4 MG, UNK
  17. LYRICA [Suspect]
     Active Substance: PREGABALIN
     Indication: DIABETIC NEUROPATHY
     Dosage: 75MG CAPSULE ONCE AT NIGHT
     Route: 048
  18. ACETAMINOPHEN W/HYDROCODONE [Concomitant]
     Active Substance: ACETAMINOPHEN\HYDROCODONE
     Dosage: UNK, [HYDROCODONE: 10 MG]/ [ACETAMINOPHEN:325 MG]
  19. GABAPENTIN. [Suspect]
     Active Substance: GABAPENTIN
     Indication: NEUROPATHY PERIPHERAL
  20. LACTULOSE. [Concomitant]
     Active Substance: LACTULOSE
     Dosage: 15 ML, DAILY
     Route: 048
  21. DICLOFENAC [Concomitant]
     Active Substance: DICLOFENAC
     Dosage: 2 G, AS NEEDED (2 GRAMS TOPICALLY TO AFFECTED AREA 4 TIMES A DAY AS NEEDED)
     Route: 061
  22. NOVOLIN R [Concomitant]
     Active Substance: INSULIN HUMAN
     Dosage: 15 IU, 3X/DAY, (BEFORE MEALS)
     Route: 058

REACTIONS (10)
  - Neuropathy peripheral [Not Recovered/Not Resolved]
  - Condition aggravated [Not Recovered/Not Resolved]
  - Insomnia [Not Recovered/Not Resolved]
  - Drug ineffective for unapproved indication [Not Recovered/Not Resolved]
  - Drug ineffective [Recovered/Resolved]
  - White blood cell count decreased [Recovered/Resolved]
  - Lung neoplasm malignant [Not Recovered/Not Resolved]
  - Peripheral arterial occlusive disease [Unknown]
  - Drug dose omission [Unknown]
  - Product use issue [Not Recovered/Not Resolved]

NARRATIVE: CASE EVENT DATE: 2016
